FAERS Safety Report 9580242 (Version 1)
Quarter: 2013Q3

REPORT INFORMATION
  Report Type: Spontaneous
  Country: CH (occurrence: None)
  Receive Date: 20130930
  Receipt Date: 20130930
  Transmission Date: 20140515
  Serious: Yes (Death)
  Sender: FDA-Public Use
  Company Number: 2013P1019539

PATIENT
  Age: 32 Year
  Sex: Male
  Weight: 65 kg

DRUGS (5)
  1. LORAZEPAM [Suspect]
     Indication: MENTAL DISORDER
  2. COCAINE [Suspect]
  3. DICLOFENAC [Suspect]
  4. OLANZAPINE [Concomitant]
  5. INSULIN [Concomitant]

REACTIONS (9)
  - Gastric haemorrhage [None]
  - Small intestinal haemorrhage [None]
  - Small intestinal haemorrhage [None]
  - Aspiration [None]
  - Gastritis erosive [None]
  - Toxicity to various agents [None]
  - Pancreatic atrophy [None]
  - Diabetic ketoacidosis [None]
  - Metabolic disorder [None]
